FAERS Safety Report 4908692-5 (Version None)
Quarter: 2006Q1

REPORT INFORMATION
  Report Type: 
  Country: None (occurrence: None)
  Receive Date: 20060210
  Receipt Date: 20051019
  Transmission Date: 20060701
  Serious: No
  Sender: FDA-Public Use
  Company Number: US-GLAXOSMITHKLINE-A0578782A

PATIENT
  Age: 46 Year
  Sex: Male
  Weight: 78.6 kg

DRUGS (3)
  1. PAXIL CR [Suspect]
     Indication: DEPRESSION
     Route: 048
     Dates: end: 20050401
  2. PAXIL [Suspect]
     Indication: DEPRESSION
     Dosage: 20MG UNKNOWN
     Route: 048
     Dates: start: 19970101
  3. LEXAPRO [Concomitant]
     Route: 048
     Dates: start: 20050401

REACTIONS (5)
  - DRUG WITHDRAWAL SYNDROME [None]
  - EJACULATION DISORDER [None]
  - PANIC ATTACK [None]
  - SOMNOLENCE [None]
  - TINNITUS [None]
